FAERS Safety Report 8256071-8 (Version None)
Quarter: 2012Q2

REPORT INFORMATION
  Report Type: 
  Country: None (occurrence: None)
  Receive Date: 20120403
  Receipt Date: 20120329
  Transmission Date: 20120825
  Serious: Yes (Other)
  Sender: FDA-Public Use
  Company Number: US-PFIZER INC-2012081409

PATIENT
  Age: 60 Year
  Sex: Female

DRUGS (2)
  1. VERAPAMIL HCL [Suspect]
     Dosage: UNK
  2. AMOXAPINE [Suspect]
     Dosage: UNK

REACTIONS (10)
  - DEEP VEIN THROMBOSIS [None]
  - SEPSIS [None]
  - TOE AMPUTATION [None]
  - TRAUMATIC LUNG INJURY [None]
  - RENAL FAILURE ACUTE [None]
  - RESPIRATORY FAILURE [None]
  - SHOCK [None]
  - DECUBITUS ULCER [None]
  - ATRIAL FIBRILLATION [None]
  - HYPERLIPIDAEMIA [None]
